FAERS Safety Report 6082734-9 (Version None)
Quarter: 2009Q1

REPORT INFORMATION
  Report Type: 
  Country: None (occurrence: None)
  Receive Date: 20090218
  Receipt Date: 20090206
  Transmission Date: 20090719
  Serious: Yes (Other)
  Sender: FDA-Public Use
  Company Number: US-PFIZER INC-2008160128

PATIENT
  Sex: Male
  Weight: 31.8 kg

DRUGS (2)
  1. DIFLUCAN [Suspect]
     Indication: INFECTION
     Dosage: 50 MG, 1X/DAY
     Route: 048
     Dates: start: 20081212
  2. NYSTATIN [Concomitant]
     Dosage: UNK

REACTIONS (5)
  - CLOSTRIDIAL INFECTION [None]
  - DRUG INEFFECTIVE [None]
  - MOVEMENT DISORDER [None]
  - TIC [None]
  - VOCAL CORD DISORDER [None]
